FAERS Safety Report 4341813-4 (Version None)
Quarter: 2004Q2

REPORT INFORMATION
  Report Type: 
  Country: None (occurrence: None)
  Receive Date: 20040420
  Receipt Date: 20040325
  Transmission Date: 20050107
  Serious: Yes (Hospitalization, Disabling)
  Sender: FDA-Public Use
  Company Number: DE-GLAXOSMITHKLINE-D0043484A

PATIENT
  Age: 37 Year
  Sex: Female
  Weight: 74.6 kg

DRUGS (8)
  1. COMBIVIR [Suspect]
     Indication: HIV INFECTION CDC CATEGORY B2
     Dosage: 450MG TWICE PER DAY
     Route: 048
     Dates: start: 20040101, end: 20040323
  2. ZIAGEN [Concomitant]
     Dosage: 1TAB TWICE PER DAY
     Route: 048
  3. L -THYROXINE [Concomitant]
     Route: 065
  4. DOXEPIN HCL [Concomitant]
     Route: 065
  5. OSYROL [Concomitant]
     Route: 065
  6. CONCOR [Concomitant]
     Dosage: 2.5MG PER DAY
     Route: 065
  7. LASIX [Concomitant]
     Route: 065
  8. POLAMIDON [Concomitant]
     Dosage: 12ML PER DAY
     Route: 065

REACTIONS (6)
  - DILATATION VENTRICULAR [None]
  - DYSPNOEA [None]
  - IMPAIRED WORK ABILITY [None]
  - PULMONARY EMBOLISM [None]
  - RIGHT VENTRICULAR FAILURE [None]
  - THROMBOCYTOPENIA [None]
